FAERS Safety Report 13444323 (Version 2)
Quarter: 2017Q2

REPORT INFORMATION
  Report Type: Spontaneous
  Country: ID (occurrence: ID)
  Receive Date: 20170414
  Receipt Date: 20170425
  Transmission Date: 20170830
  Serious: Yes (Death, Life-Threatening, Hospitalization, Other)
  Sender: FDA-Public Use
  Company Number: ID-ASTRAZENECA-2017SE38819

PATIENT
  Age: 62 Year
  Sex: Male

DRUGS (5)
  1. BICALUTAMIDE. [Suspect]
     Active Substance: BICALUTAMIDE
     Indication: PROSTATE CANCER
     Route: 048
     Dates: start: 201511, end: 201512
  2. BICALUTAMIDE. [Suspect]
     Active Substance: BICALUTAMIDE
     Indication: PROSTATE CANCER
     Route: 048
     Dates: start: 201506
  3. BICALUTAMIDE. [Suspect]
     Active Substance: BICALUTAMIDE
     Indication: PROSTATE CANCER
     Route: 048
     Dates: start: 201507, end: 201509
  4. BICALUTAMIDE. [Suspect]
     Active Substance: BICALUTAMIDE
     Indication: PROSTATE CANCER
     Route: 048
     Dates: start: 201510
  5. LEUPRORELIN [Concomitant]
     Active Substance: LEUPROLIDE ACETATE
     Indication: PROSTATE CANCER
     Dosage: 11.25MG UNKNOWN
     Route: 065

REACTIONS (20)
  - Tachycardia [Unknown]
  - Anaemia [Fatal]
  - Pulmonary mass [Fatal]
  - Respiratory failure [Fatal]
  - Hypoalbuminaemia [Unknown]
  - Musculoskeletal stiffness [Fatal]
  - Hypertension [Recovering/Resolving]
  - Metastases to bone [Fatal]
  - Depressed level of consciousness [Fatal]
  - Pleural effusion [Fatal]
  - Bone pain [Fatal]
  - Blood testosterone decreased [Fatal]
  - Malignant neoplasm progression [Fatal]
  - Lung infiltration [Fatal]
  - Platelet count decreased [Unknown]
  - White blood cell count increased [Unknown]
  - Metastases to lung [Unknown]
  - Oedema peripheral [Recovered/Resolved]
  - Hyponatraemia [Unknown]
  - Pneumonia [Unknown]
